FAERS Safety Report 8785549 (Version 1)
Quarter: 2012Q4

REPORT INFORMATION
  Report Type: 
  Country: US (occurrence: US)
  Receive Date: 20120914
  Receipt Date: 20120914
  Transmission Date: 20130627
  Serious: Yes (Other)
  Sender: FDA-Public Use
  Company Number: US-PFIZER INC-2012223668

PATIENT
  Age: 37 Year
  Sex: Female
  Weight: 90.7 kg

DRUGS (5)
  1. GEODON [Suspect]
     Indication: DEPRESSION
     Dosage: 80 mg, 2x/day
     Route: 048
  2. GEODON [Suspect]
     Dosage: 20 mg, 2x/day
     Route: 048
  3. PRISTIQ [Concomitant]
     Dosage: 150 mg, UNK
  4. AMBIEN [Concomitant]
     Indication: SLEEP DISORDER
     Dosage: UNK
  5. CLONAZEPAM [Concomitant]
     Indication: ANXIETY
     Dosage: UNK

REACTIONS (2)
  - Convulsion [Unknown]
  - Weight increased [Unknown]
